FAERS Safety Report 7610970-6 (Version None)
Quarter: 2011Q3

REPORT INFORMATION
  Report Type: 
  Country: None (occurrence: None)
  Receive Date: 20110715
  Receipt Date: 20110708
  Transmission Date: 20111222
  Serious: Yes (Other)
  Sender: FDA-Public Use
  Company Number: DE-BAYER-2011-042649

PATIENT

DRUGS (2)
  1. FLUVASTATIN [Concomitant]
  2. ULTRAVIST 150 [Suspect]
     Indication: ARTERIOGRAM CORONARY
     Dosage: UNK

REACTIONS (1)
  - BLOOD CREATINE PHOSPHOKINASE INCREASED [None]
